FAERS Safety Report 5493355-0 (Version None)
Quarter: 2007Q4

REPORT INFORMATION
  Report Type: 
  Country: None (occurrence: None)
  Receive Date: 20071022
  Receipt Date: 20071022
  Transmission Date: 20080405
  Serious: Yes (Death, Hospitalization)
  Sender: FDA-Public Use
  Company Number: None

PATIENT
  Age: 57 Year
  Sex: Female

DRUGS (8)
  1. ANTI-THYMOCYTE GLOBULIN [Suspect]
     Dates: start: 20060617, end: 20060620
  2. CYCLOSPORINE [Concomitant]
  3. LEVOFLOXACIN [Concomitant]
  4. VALACYCLOVIR [Concomitant]
  5. PREDNISONE [Concomitant]
  6. VORICONAZOLE [Concomitant]
  7. CEFTAZIDIME [Concomitant]
  8. VANCOMYCIN [Concomitant]

REACTIONS (10)
  - APLASTIC ANAEMIA [None]
  - BLOOD BILIRUBIN INCREASED [None]
  - ENCEPHALOPATHY [None]
  - EPSTEIN-BARR VIRUS INFECTION [None]
  - FEBRILE NEUTROPENIA [None]
  - FREQUENT BOWEL MOVEMENTS [None]
  - HEPATIC FAILURE [None]
  - RENAL IMPAIRMENT [None]
  - THERAPEUTIC AGENT TOXICITY [None]
  - URINE OUTPUT DECREASED [None]
